FAERS Safety Report 26100953 (Version 2)
Quarter: 2025Q4

REPORT INFORMATION
  Report Type: Spontaneous
  Country: GB (occurrence: GB)
  Receive Date: 20251128
  Receipt Date: 20251230
  Transmission Date: 20260118
  Serious: Yes (Disabling, Other)
  Sender: BAXTER
  Company Number: GB-BAXTER-2025BAX024706

PATIENT
  Age: 4 Month
  Sex: Male

DRUGS (7)
  1. ISOFLURANE [Suspect]
     Active Substance: ISOFLURANE
     Indication: Sedation
     Dosage: VIA THE SEDACONDA; ETI SO WAS MAX1.2 (APART FROM A ONE OFF 1.5 AND THEN A 1.4 SEE BELOW) WITH MOST A
  2. PROPOFOL [Suspect]
     Active Substance: PROPOFOL
     Indication: Sedation
     Dosage: (MAX 4.1MG/KG/H)
     Route: 042
  3. CLONIDINE [Suspect]
     Active Substance: CLONIDINE
     Indication: Sedation
     Dosage: (5MCG/KG/4 - 6HLY) PO
     Route: 048
  4. MIDAZOLAM [Suspect]
     Active Substance: MIDAZOLAM
     Indication: Sedation
     Dosage: (MAX 300MCG/KG/H)
     Route: 042
  5. ROCURONIUM [Suspect]
     Active Substance: ROCURONIUM BROMIDE
     Indication: Sedation
     Route: 065
  6. MORPHINE [Suspect]
     Active Substance: MORPHINE
     Indication: Sedation
     Dosage: (30MCG/KG/H)
     Route: 042
  7. FENTANYL [Suspect]
     Active Substance: FENTANYL
     Indication: Sedation
     Dosage: (MAX 4MCG/KG/H),
     Route: 042

REACTIONS (5)
  - Brain injury [Unknown]
  - Subdural effusion [Unknown]
  - Dyskinesia [Unknown]
  - Drug withdrawal syndrome [Unknown]
  - Seizure [Unknown]

NARRATIVE: CASE EVENT DATE: 20251119
